FAERS Safety Report 4322659-X (Version None)
Quarter: 2004Q1

REPORT INFORMATION
  Report Type: 
  Country: None (occurrence: None)
  Receive Date: 20040324
  Receipt Date: 20040112
  Transmission Date: 20041129
  Serious: No
  Sender: FDA-Public Use
  Company Number: US-BRISTOL-MYERS SQUIBB COMPANY-12476271

PATIENT
  Age: 46 Year
  Sex: Male
  Weight: 80 kg

DRUGS (6)
  1. REYATAZ [Suspect]
     Indication: HIV INFECTION
     Route: 048
     Dates: start: 20031001
  2. VIREAD [Concomitant]
  3. VIDEX EC [Concomitant]
  4. NORVIR [Concomitant]
  5. ACYCLOVIR [Concomitant]
  6. PROTONIX [Concomitant]

REACTIONS (1)
  - INSOMNIA [None]
